FAERS Safety Report 24258160 (Version 1)
Quarter: 2024Q3

REPORT INFORMATION
  Report Type: Spontaneous
  Country: BR (occurrence: BR)
  Receive Date: 20240828
  Receipt Date: 20240828
  Transmission Date: 20241017
  Serious: Yes (Other)
  Sender: CHEPLAPHARM
  Company Number: BR-CHEPLA-2024010843

PATIENT
  Sex: Male

DRUGS (14)
  1. CLONAZEPAM [Suspect]
     Active Substance: CLONAZEPAM
     Indication: Sleep disorder
     Dosage: STRENGTH: 2MG, EVERY NIGHT, SPLITTED TABLET (QUANTITY NOT INFORMED) AND, WHEN NECESSARY, TABLET D...
     Route: 048
     Dates: start: 2004
  2. CLONAZEPAM [Suspect]
     Active Substance: CLONAZEPAM
     Indication: Insomnia
     Dosage: STRENGTH: 2MG, EVERY NIGHT, SPLITTED TABLET (QUANTITY NOT INFORMED) AND, WHEN NECESSARY, TABLET D...
     Route: 048
     Dates: start: 2004
  3. CLONAZEPAM [Suspect]
     Active Substance: CLONAZEPAM
     Indication: Depression
     Dosage: STRENGTH: 2MG, EVERY NIGHT, SPLITTED TABLET (QUANTITY NOT INFORMED) AND, WHEN NECESSARY, TABLET D...
     Route: 048
     Dates: start: 2004
  4. CLONAZEPAM [Suspect]
     Active Substance: CLONAZEPAM
     Indication: Anxiety disorder
     Dosage: STRENGTH: 2MG, EVERY NIGHT, SPLITTED TABLET (QUANTITY NOT INFORMED) AND, WHEN NECESSARY, TABLET D...
     Route: 048
     Dates: start: 2004
  5. CLONAZEPAM [Suspect]
     Active Substance: CLONAZEPAM
     Indication: Sleep disorder
     Dosage: IN 2023/2024/MAH REF 115240011?DAILY DOSE: 1 DOSAGE FORM
     Route: 048
     Dates: start: 2023
  6. CLONAZEPAM [Suspect]
     Active Substance: CLONAZEPAM
     Indication: Insomnia
     Dosage: IN 2023/2024/MAH REF 115240011?DAILY DOSE: 1 DOSAGE FORM
     Route: 048
     Dates: start: 2023
  7. CLONAZEPAM [Suspect]
     Active Substance: CLONAZEPAM
     Indication: Depression
     Dosage: IN 2023/2024/MAH REF 115240011?DAILY DOSE: 1 DOSAGE FORM
     Route: 048
     Dates: start: 2023
  8. CLONAZEPAM [Suspect]
     Active Substance: CLONAZEPAM
     Indication: Anxiety disorder
     Dosage: IN 2023/2024/MAH REF 115240011?DAILY DOSE: 1 DOSAGE FORM
     Route: 048
     Dates: start: 2023
  9. CLONAZEPAM [Suspect]
     Active Substance: CLONAZEPAM
     Indication: Sleep disorder
     Dosage: STRENGTH: 2.5MG/ML, MAH REF 115240011, DECREASING 1 DROP PER MONTH AND SUSPENDING THE TREATMENT A...
     Route: 048
  10. CLONAZEPAM [Suspect]
     Active Substance: CLONAZEPAM
     Indication: Insomnia
     Dosage: STRENGTH: 2.5MG/ML, MAH REF 115240011, DECREASING 1 DROP PER MONTH AND SUSPENDING THE TREATMENT A...
     Route: 048
  11. CLONAZEPAM [Suspect]
     Active Substance: CLONAZEPAM
     Indication: Depression
     Dosage: STRENGTH: 2.5MG/ML, MAH REF 115240011, DECREASING 1 DROP PER MONTH AND SUSPENDING THE TREATMENT A...
     Route: 048
  12. CLONAZEPAM [Suspect]
     Active Substance: CLONAZEPAM
     Indication: Anxiety disorder
     Dosage: STRENGTH: 2.5MG/ML, MAH REF 115240011, DECREASING 1 DROP PER MONTH AND SUSPENDING THE TREATMENT A...
     Route: 048
  13. AMLODIPINE BESYLATE [Concomitant]
     Active Substance: AMLODIPINE BESYLATE
     Indication: Product used for unknown indication
     Dosage: REPORTED AS: 2 MG, 1 TABLET A DAY, IN THE MORNING
  14. CLONAZEPAM [Concomitant]
     Active Substance: CLONAZEPAM
     Indication: Product used for unknown indication
     Dosage: EXPIRATION DATE: 02/2025?MANUFACTURE: 02/2023

REACTIONS (7)
  - Haemorrhagic stroke [Unknown]
  - Drug dependence [Unknown]
  - Product administration error [Not Recovered/Not Resolved]
  - Off label use [Not Recovered/Not Resolved]
  - Product physical issue [Unknown]
  - Intentional product use issue [Unknown]
  - Chronic gastritis [Unknown]
